FAERS Safety Report 7476130-7 (Version None)
Quarter: 2011Q2

REPORT INFORMATION
  Report Type: 
  Country: None (occurrence: None)
  Receive Date: 20110512
  Receipt Date: 20110504
  Transmission Date: 20111010
  Serious: Yes (Disabling)
  Sender: FDA-Public Use
  Company Number: US-MERCK-1105USA00696

PATIENT
  Sex: Male

DRUGS (2)
  1. PROPECIA [Suspect]
     Indication: ALOPECIA
     Route: 048
     Dates: start: 19980101, end: 20070101
  2. PROSCAR [Suspect]
     Indication: ALOPECIA
     Route: 048
     Dates: start: 19980101, end: 20070101

REACTIONS (10)
  - ANXIETY [None]
  - INTENTIONAL DRUG MISUSE [None]
  - TESTICULAR PAIN [None]
  - LIBIDO DECREASED [None]
  - SEXUAL DYSFUNCTION [None]
  - SEMEN VOLUME DECREASED [None]
  - ERECTILE DYSFUNCTION [None]
  - SENSORY LOSS [None]
  - DEPRESSION [None]
  - WRONG TECHNIQUE IN DRUG USAGE PROCESS [None]
